FAERS Safety Report 5446991-1 (Version None)
Quarter: 2007Q3

REPORT INFORMATION
  Report Type: 
  Country: None (occurrence: None)
  Receive Date: 20070803
  Receipt Date: 20070321
  Transmission Date: 20080115
  Serious: Yes (Other)
  Sender: FDA-Public Use
  Company Number: US-JNJFOC-20070305178

PATIENT
  Age: 24 Month
  Sex: Female
  Weight: 9.9791 kg

DRUGS (1)
  1. TYLENOL (CAPLET) [Suspect]
     Indication: ACCIDENTAL EXPOSURE
     Dosage: POSSIBLY UP TO 2880 MG;
     Dates: start: 20070321, end: 20070321

REACTIONS (2)
  - ACCIDENTAL DRUG INTAKE BY CHILD [None]
  - ACCIDENTAL OVERDOSE [None]
